FAERS Safety Report 13984383 (Version 2)
Quarter: 2017Q4

REPORT INFORMATION
  Report Type: Spontaneous
  Country: DE (occurrence: DE)
  Receive Date: 20170918
  Receipt Date: 20171011
  Transmission Date: 20180321
  Serious: Yes (Life-Threatening, Hospitalization, Other)
  Sender: FDA-Public Use
  Company Number: DE-PFIZER INC-2017396337

PATIENT
  Age: 77 Year
  Sex: Male
  Weight: 83 kg

DRUGS (8)
  1. TORISEL [Suspect]
     Active Substance: TEMSIROLIMUS
     Indication: RENAL CELL CARCINOMA RECURRENT
     Dosage: 25 MG, WEEKLY(60 MINUTES)
     Route: 042
     Dates: start: 20170905
  2. RAMILICH [Concomitant]
     Active Substance: RAMIPRIL
     Indication: HYPERTENSION
     Dosage: 5 MG, 1X/DAY
     Route: 048
  3. DEXAMETHASONE. [Concomitant]
     Active Substance: DEXAMETHASONE
     Indication: PREMEDICATION
     Dosage: 8 MG, UNK
     Route: 048
  4. DOXAGAMMA [Concomitant]
     Indication: HYPERTENSION
     Dosage: 1 DF, 2X/DAY
     Route: 048
  5. FENISTIL [Concomitant]
     Active Substance: DIMETHINDENE
     Indication: PREMEDICATION
     Dosage: 4 MG, UNK
     Route: 042
  6. FELODIPIN [Concomitant]
     Active Substance: FELODIPINE
     Indication: HYPERTENSION
     Dosage: 10 MG, 1X/DAY
     Route: 048
  7. ALLOPURINOL. [Concomitant]
     Active Substance: ALLOPURINOL
     Dosage: 300 MG, 1X/DAY
     Route: 048
  8. BISOPROLOL [Concomitant]
     Active Substance: BISOPROLOL
     Indication: HYPERTENSION
     Dosage: 2.5 MG, 1X/DAY
     Route: 048

REACTIONS (5)
  - Angioedema [Recovering/Resolving]
  - Swollen tongue [Not Recovered/Not Resolved]
  - Throat tightness [Recovering/Resolving]
  - Laryngeal oedema [Not Recovered/Not Resolved]
  - Respiratory distress [Recovering/Resolving]

NARRATIVE: CASE EVENT DATE: 20170906
